FAERS Safety Report 24646485 (Version 1)
Quarter: 2024Q4

REPORT INFORMATION
  Report Type: Spontaneous
  Country: CA (occurrence: CA)
  Receive Date: 20241121
  Receipt Date: 20241121
  Transmission Date: 20250114
  Serious: Yes (Hospitalization, Other)
  Sender: NOVITIUM PHARMA
  Company Number: CA-NOVITIUMPHARMA-2024CANVP02583

PATIENT
  Age: 7 Month
  Sex: Female

DRUGS (13)
  1. PREDNISONE [Suspect]
     Active Substance: PREDNISONE
     Indication: Lymphangioma
     Route: 048
  2. PREDNISONE [Suspect]
     Active Substance: PREDNISONE
     Indication: Pleural effusion
     Route: 042
  3. SIROLIMUS [Concomitant]
     Active Substance: SIROLIMUS
     Route: 048
  4. SIROLIMUS [Concomitant]
     Active Substance: SIROLIMUS
     Indication: Pleural effusion
  5. SIROLIMUS [Concomitant]
     Active Substance: SIROLIMUS
  6. VINCRISTINE [Concomitant]
     Active Substance: VINCRISTINE
     Route: 042
  7. PROPRANOLOL [Concomitant]
     Active Substance: PROPRANOLOL HYDROCHLORIDE
     Route: 048
  8. INTERFERON [Concomitant]
     Active Substance: INTERFERON
     Route: 042
  9. OCTREOTIDE [Concomitant]
     Active Substance: OCTREOTIDE
     Indication: Pleural effusion
  10. DOXYCYCLINE [Concomitant]
     Active Substance: DOXYCYCLINE
     Indication: Pleural effusion
  11. TRAMETINIB [Concomitant]
     Active Substance: TRAMETINIB
  12. TRAMETINIB [Concomitant]
     Active Substance: TRAMETINIB
     Indication: Pleural effusion
  13. BLEOMYCIN [Concomitant]
     Active Substance: BLEOMYCIN SULFATE
     Indication: Product used for unknown indication

REACTIONS (9)
  - Adrenal suppression [Unknown]
  - Malnutrition [Unknown]
  - Psychomotor retardation [Unknown]
  - Osteoporosis [Unknown]
  - Cataract subcapsular [Unknown]
  - Cushingoid [Unknown]
  - Hypertension [Unknown]
  - Infection [Unknown]
  - Hypotonia [Unknown]
